FAERS Safety Report 8678403 (Version 2)
Quarter: 2013Q2

REPORT INFORMATION
  Report Type: Spontaneous
  Country: TR (occurrence: None)
  Receive Date: 20120705
  Receipt Date: 20130521
  Transmission Date: 20140414
  Serious: Yes (Other)
  Sender: FDA-Public Use
  Company Number: KAD201206-000356

PATIENT
  Age: 23 Year
  Sex: Female

DRUGS (2)
  1. RIBAVIRIN [Suspect]
     Indication: HEPATITIS C
     Dosage: 1000 MG/DAY
     Dates: start: 200801
  2. PEGINTERFERON ALFA-2A [Suspect]
     Indication: HEPATITIS C
     Dosage: 180 MCG/WEEK
     Dates: start: 200801

REACTIONS (6)
  - DEPRESSION [None]
  - FATIGUE [None]
  - HODGKIN^S DISEASE [None]
  - DISEASE RECURRENCE [None]
  - DRUG INTOLERANCE [None]
  - Therapeutic response decreased [None]
